FAERS Safety Report 22911912 (Version 2)
Quarter: 2023Q4

REPORT INFORMATION
  Report Type: Spontaneous
  Country: US (occurrence: US)
  Receive Date: 20230906
  Receipt Date: 20231114
  Transmission Date: 20240110
  Serious: No
  Sender: FDA-Public Use
  Company Number: US-PFIZER INC-PV202300150182

PATIENT
  Age: 60 Year
  Sex: Female
  Weight: 112.65 kg

DRUGS (2)
  1. BOSULIF [Suspect]
     Active Substance: BOSUTINIB MONOHYDRATE
     Indication: Chronic myeloid leukaemia
     Dosage: 400 MG, DAILY, (TAKE ONE TABLET PO DAILY)
     Route: 048
  2. BOSULIF [Suspect]
     Active Substance: BOSUTINIB MONOHYDRATE
     Dosage: BOSULIF 100 MG TABLET, TAKE 4 TABS DAILY
     Route: 048

REACTIONS (2)
  - Peripheral swelling [Unknown]
  - Arthralgia [Recovering/Resolving]
